FAERS Safety Report 10188796 (Version 2)
Quarter: 2014Q2

REPORT INFORMATION
  Report Type: Spontaneous
  Country: FR (occurrence: FR)
  Receive Date: 20140522
  Receipt Date: 20140625
  Transmission Date: 20141212
  Serious: Yes (Hospitalization)
  Sender: FDA-Public Use
  Company Number: FR-PFIZER INC-2014134120

PATIENT
  Age: 74 Year
  Sex: Male

DRUGS (12)
  1. ZYVOXID [Suspect]
     Indication: LYMPH NODE TUBERCULOSIS
     Dosage: 600 MG, DAILY
     Route: 048
     Dates: start: 20140111
  2. IZILOX [Suspect]
     Indication: LYMPH NODE TUBERCULOSIS
     Dosage: 1 DF OF 400 MG, 1X/DAY
     Dates: start: 20140111
  3. TRECATOR [Suspect]
     Indication: LYMPH NODE TUBERCULOSIS
     Dosage: 500 MG, 2X/DAY
     Dates: start: 20140122
  4. CORTANCYL [Suspect]
     Indication: DRUG REACTION WITH EOSINOPHILIA AND SYSTEMIC SYMPTOMS
     Dosage: 1 MG/KG, DAILY
     Dates: start: 20131228
  5. CORTANCYL [Suspect]
     Dosage: 45 MG, DAILY
     Dates: start: 20140227, end: 20140331
  6. VOGALENE [Suspect]
     Indication: VOMITING
     Dosage: UNK
     Dates: start: 201402
  7. METFORMIN [Concomitant]
     Dosage: 850 MG, 3X/DAY
     Route: 048
  8. AMLOR [Concomitant]
     Dosage: 1 DF OF 5 MG, 1X/DAY
     Route: 048
  9. DIFFU K [Concomitant]
  10. CALCIDOSE VITAMINE D [Concomitant]
     Dosage: 1 DF, DAILY
     Route: 048
  11. INEXIUM [Concomitant]
     Dosage: 1 DF OF 20 MG, DAILY
     Route: 048
  12. KARDEGIC [Concomitant]
     Dosage: 160 MG, DAILY

REACTIONS (2)
  - Thrombocytopenia [Recovering/Resolving]
  - Hepatocellular injury [Recovered/Resolved]
